FAERS Safety Report 4826301-0 (Version None)
Quarter: 2005Q4

REPORT INFORMATION
  Report Type: 
  Country: None (occurrence: None)
  Receive Date: 20051109
  Receipt Date: 20051031
  Transmission Date: 20060501
  Serious: Yes (Disabling)
  Sender: FDA-Public Use
  Company Number: 2005130286

PATIENT
  Age: 69 Year
  Sex: Male

DRUGS (3)
  1. LIPITOR [Suspect]
     Indication: HYPERLIPIDAEMIA
     Dosage: 10 MG (10 MG, 1 IN 1 D), ORAL
     Route: 048
     Dates: start: 19980801
  2. LOPRESSOR [Concomitant]
  3. ASPIRIN [Concomitant]

REACTIONS (5)
  - LIVER FUNCTION TEST ABNORMAL [None]
  - MUSCLE ATROPHY [None]
  - MUSCULAR WEAKNESS [None]
  - MYOPATHY [None]
  - WEIGHT DECREASED [None]
